FAERS Safety Report 5873373-0 (Version None)
Quarter: 2008Q3

REPORT INFORMATION
  Report Type: 
  Country: None (occurrence: None)
  Receive Date: 20080903
  Receipt Date: 20080827
  Transmission Date: 20090109
  Serious: Yes (Other)
  Sender: FDA-Public Use
  Company Number: 2008SP017555

PATIENT
  Age: 66 Year
  Sex: Female

DRUGS (1)
  1. PEGINTERFERON ALFA-2B (S-P) (PEGINTERFERON ALFA-2B) [Suspect]
     Indication: HEPATITIS C
     Dosage: 0.5 MCG/KG;QW;SC
     Route: 058
     Dates: start: 20070704

REACTIONS (2)
  - RENAL CELL CARCINOMA [None]
  - RENAL CYST [None]
